FAERS Safety Report 8453613-4 (Version None)
Quarter: 2012Q2

REPORT INFORMATION
  Report Type: 
  Country: None (occurrence: None)
  Receive Date: 20120620
  Receipt Date: 20120613
  Transmission Date: 20120825
  Serious: Yes (Other)
  Sender: FDA-Public Use
  Company Number: JP-MERCK-1206USA02880

PATIENT
  Sex: Male

DRUGS (5)
  1. METFORMIN HCL [Concomitant]
     Indication: DIABETES MELLITUS
     Dosage: DOSAGE IS UNCERTAIN DURING A DAY
     Route: 048
     Dates: end: 20120301
  2. MANIDIPINE HYDROCHLORIDE [Concomitant]
     Dosage: DOSAGE IS UNCERTAIN DURING A DAY
     Route: 048
  3. CANDESARTAN CILEXETIL [Concomitant]
     Indication: HYPERTENSION
     Dosage: DOSAGE IS UNCERTAIN DURING A DAY
     Route: 048
  4. BENCLART [Concomitant]
     Dosage: DOSAGE IS UNCERTAIN DURING A DAY
     Route: 048
     Dates: end: 20120301
  5. JANUVIA [Suspect]
     Indication: DIABETES MELLITUS
     Route: 048
     Dates: start: 20110601, end: 20120301

REACTIONS (1)
  - RHABDOMYOLYSIS [None]
